FAERS Safety Report 16158881 (Version 1)
Quarter: 2019Q2

REPORT INFORMATION
  Report Type: Spontaneous
  Country: US (occurrence: US)
  Receive Date: 20190404
  Receipt Date: 20190404
  Transmission Date: 20190711
  Serious: No
  Sender: FDA-Public Use
  Company Number: US-GLAXOSMITHKLINE-US2019GSK056212

PATIENT
  Sex: Female
  Weight: 59 kg

DRUGS (1)
  1. WELLBUTRIN XL [Suspect]
     Active Substance: BUPROPION HYDROCHLORIDE
     Indication: EX-TOBACCO USER
     Dosage: 300 MG, UNK
     Route: 048
     Dates: start: 201901

REACTIONS (5)
  - Nervousness [Unknown]
  - Abdominal pain upper [Unknown]
  - Malaise [Unknown]
  - Headache [Unknown]
  - Product use in unapproved indication [Unknown]
